FAERS Safety Report 7604919-X (Version None)
Quarter: 2011Q3

REPORT INFORMATION
  Report Type: 
  Country: None (occurrence: None)
  Receive Date: 20110712
  Receipt Date: 20110627
  Transmission Date: 20111222
  Serious: Yes (Hospitalization, Other)
  Sender: FDA-Public Use
  Company Number: US-AMGEN-USASP2011032829

PATIENT
  Age: 34 Year
  Sex: Female

DRUGS (1)
  1. ENBREL [Suspect]
     Indication: RHEUMATOID ARTHRITIS
     Dosage: 50 MG, QWK
     Dates: start: 20040501

REACTIONS (17)
  - MENORRHAGIA [None]
  - NEUROPATHY PERIPHERAL [None]
  - INCISION SITE INFECTION [None]
  - HYPERTENSION [None]
  - SEROMA [None]
  - NECK PAIN [None]
  - BRONCHITIS [None]
  - UTERINE MASS [None]
  - RADIATION SKIN INJURY [None]
  - MUSCULOSKELETAL PAIN [None]
  - UPPER RESPIRATORY TRACT INFECTION [None]
  - BREAST CANCER [None]
  - RHEUMATOID ARTHRITIS [None]
  - PAIN IN EXTREMITY [None]
  - INJECTION SITE PAIN [None]
  - OPEN WOUND [None]
  - SINUSITIS [None]
